FAERS Safety Report 6134542-8 (Version None)
Quarter: 2009Q1

REPORT INFORMATION
  Report Type: 
  Country: None (occurrence: None)
  Receive Date: 20090327
  Receipt Date: 20090317
  Transmission Date: 20090719
  Serious: Yes (Hospitalization)
  Sender: FDA-Public Use
  Company Number: FR-BAYER-200916536GPV

PATIENT
  Age: 56 Year
  Sex: Female

DRUGS (2)
  1. IZILOX [Suspect]
     Indication: DEVICE RELATED INFECTION
     Dosage: TOTAL DAILY DOSE: 400 MG  UNIT DOSE: 400 MG
     Route: 048
     Dates: start: 20090216, end: 20090220
  2. INVANZ [Concomitant]
     Indication: DEVICE RELATED INFECTION
     Dosage: UNIT DOSE: 1 G
     Route: 042
     Dates: start: 20090216

REACTIONS (1)
  - HEPATIC ENCEPHALOPATHY [None]
